FAERS Safety Report 10925321 (Version 3)
Quarter: 2015Q2

REPORT INFORMATION
  Report Type: Spontaneous
  Country: US (occurrence: US)
  Receive Date: 20150318
  Receipt Date: 20150630
  Transmission Date: 20150821
  Serious: No
  Sender: FDA-Public Use
  Company Number: US-PFIZER INC-2015090739

PATIENT
  Age: 30 Year
  Sex: Male
  Weight: 73 kg

DRUGS (4)
  1. CHANTIX [Suspect]
     Active Substance: VARENICLINE TARTRATE
     Indication: SMOKING CESSATION THERAPY
     Dosage: 5 MG ONCE A DAY AND THEN DAYS 1, 2 AND 3 ONE TABLET EACH MORNING
     Dates: start: 20150220, end: 201502
  2. CHANTIX [Suspect]
     Active Substance: VARENICLINE TARTRATE
     Dosage: 1 DF, 2X/DAY (DAYS 4-7 ONE TABLET EACH MORNING AND EVENING)
     Dates: start: 201502, end: 201503
  3. CHANTIX [Suspect]
     Active Substance: VARENICLINE TARTRATE
     Dosage: 0.5 MG, (11 TABLETS)
     Dates: start: 20150219, end: 20150227
  4. CHANTIX [Suspect]
     Active Substance: VARENICLINE TARTRATE
     Dosage: 1 MG, (3 TABLETS)
     Dates: start: 20150219, end: 20150227

REACTIONS (1)
  - Somnambulism [Recovered/Resolved]

NARRATIVE: CASE EVENT DATE: 20150219
